FAERS Safety Report 4302074-5 (Version None)
Quarter: 2004Q1

REPORT INFORMATION
  Report Type: 
  Country: None (occurrence: None)
  Receive Date: 20040220
  Receipt Date: 20040209
  Transmission Date: 20041129
  Serious: Yes (Hospitalization)
  Sender: FDA-Public Use
  Company Number: 04P-062-0250024-00

PATIENT
  Age: 30 Year
  Sex: Female

DRUGS (2)
  1. VALPROATE SODIUM [Suspect]
     Indication: EPILEPSY
     Dosage: 800 MG, 1 IN 1 D, ORAL
     Route: 048
     Dates: start: 20010101
  2. LAMOTRIGINE [Suspect]
     Indication: EPILEPSY
     Dosage: 150 MG, 2 IN 1 D, ORAL
     Route: 048
     Dates: start: 20010101

REACTIONS (1)
  - FIBROADENOMA OF BREAST [None]
